APPROVED DRUG PRODUCT: INVEGA
Active Ingredient: PALIPERIDONE
Strength: 12MG **Federal Register determination that product was not discontinued or withdrawn for safety or effectiveness reasons**
Dosage Form/Route: TABLET, EXTENDED RELEASE;ORAL
Application: N021999 | Product #004
Applicant: JANSSEN PHARMACEUTICALS INC
Approved: Dec 19, 2006 | RLD: Yes | RS: No | Type: DISCN